FAERS Safety Report 6477623-1 (Version None)
Quarter: 2009Q4

REPORT INFORMATION
  Report Type: 
  Country: None (occurrence: None)
  Receive Date: 20091204
  Receipt Date: 20091204
  Transmission Date: 20100525
  Serious: No
  Sender: FDA-Public Use
  Company Number: None

PATIENT
  Sex: Female
  Weight: 81.6475 kg

DRUGS (1)
  1. LEVAQUIN [Suspect]
     Indication: BACTERIAL INFECTION
     Dosage: 500MG 1XDAY PO
     Route: 048
     Dates: start: 20091102, end: 20091106

REACTIONS (11)
  - AGITATION [None]
  - ANXIETY [None]
  - COGNITIVE DISORDER [None]
  - DIZZINESS [None]
  - FATIGUE [None]
  - INSOMNIA [None]
  - MYALGIA [None]
  - PYREXIA [None]
  - TENDON PAIN [None]
  - TREMOR [None]
  - VISUAL IMPAIRMENT [None]
